FAERS Safety Report 8032452-2 (Version None)
Quarter: 2012Q1

REPORT INFORMATION
  Report Type: 
  Country: None (occurrence: None)
  Receive Date: 20120110
  Receipt Date: 20120106
  Transmission Date: 20120608
  Serious: No
  Sender: FDA-Public Use
  Company Number: US-JNJFOC-20120102122

PATIENT
  Sex: Male
  Weight: 77.11 kg

DRUGS (1)
  1. DURAGESIC-100 [Suspect]
     Indication: NERVOUSNESS
     Route: 062
     Dates: start: 20090701

REACTIONS (3)
  - WRONG TECHNIQUE IN DRUG USAGE PROCESS [None]
  - ADVERSE DRUG REACTION [None]
  - DRUG DOSE OMISSION [None]
